FAERS Safety Report 20510886 (Version 6)
Quarter: 2022Q3

REPORT INFORMATION
  Report Type: Report from Study
  Country: PA (occurrence: PA)
  Receive Date: 20220224
  Receipt Date: 20220909
  Transmission Date: 20221027
  Serious: Yes (Other)
  Sender: FDA-Public Use
  Company Number: PA-NOVARTISPH-NVSC2022PA017725

PATIENT
  Sex: Female

DRUGS (6)
  1. KISQALI [Suspect]
     Active Substance: RIBOCICLIB
     Indication: Breast cancer
     Dosage: 800 MG, QD
     Route: 048
     Dates: start: 202003
  2. KISQALI [Suspect]
     Active Substance: RIBOCICLIB
     Indication: Breast cancer metastatic
     Dosage: 600 MG, QD
     Route: 048
     Dates: start: 202003
  3. KISQALI [Suspect]
     Active Substance: RIBOCICLIB
     Dosage: 60 MG, QD
     Route: 048
     Dates: start: 202203
  4. KISQALI [Suspect]
     Active Substance: RIBOCICLIB
     Dosage: 600 MG, QD
     Route: 048
     Dates: start: 20200301, end: 202207
  5. TRAMADOL [Suspect]
     Active Substance: TRAMADOL
     Indication: Product used for unknown indication
     Dosage: UNK
     Route: 065
  6. ARIMIDEX [Concomitant]
     Active Substance: ANASTROZOLE
     Indication: Product used for unknown indication
     Dosage: 1 DOSAGE FORM (1 TABLET)
     Route: 065

REACTIONS (17)
  - Haemorrhage [Unknown]
  - Diabetes mellitus [Unknown]
  - Breast haemorrhage [Unknown]
  - Metastases to lung [Unknown]
  - Metastases to bone [Unknown]
  - Drug ineffective [Unknown]
  - Musculoskeletal chest pain [Unknown]
  - Fall [Unknown]
  - Drug hypersensitivity [Unknown]
  - Skin fissures [Unknown]
  - Breast pain [Unknown]
  - Feeling abnormal [Unknown]
  - Dehydration [Unknown]
  - Diarrhoea [Recovering/Resolving]
  - Vomiting [Recovering/Resolving]
  - Pigmentation disorder [Unknown]
  - Incorrect dose administered [Unknown]
